FAERS Safety Report 10375556 (Version 2)
Quarter: 2015Q4

REPORT INFORMATION
  Report Type: Spontaneous
  Country: US (occurrence: None)
  Receive Date: 20140804
  Receipt Date: 20151001
  Transmission Date: 20160304
  Serious: Yes (Hospitalization)
  Sender: FDA-Public Use
  Company Number: 1224850-2014-00005

PATIENT
  Age: 44 Year
  Sex: Female

DRUGS (31)
  1. LIBERTY CYCLER AND CASSETTE [Concomitant]
  2. ASPIR LOW [Concomitant]
     Active Substance: ASPIRIN
  3. ATROPINE/DIPHENOXYLATE [Concomitant]
  4. NEPRO/CARB STEADY [Concomitant]
  5. NORVIR [Concomitant]
     Active Substance: RITONAVIR
  6. VICODIN [Concomitant]
     Active Substance: ACETAMINOPHEN\HYDROCODONE BITARTRATE
  7. CALCIUM AND VITAMIN D [Concomitant]
     Active Substance: CALCIUM\VITAMIN D
  8. TOPROL XL [Concomitant]
     Active Substance: METOPROLOL SUCCINATE
  9. CHANTIX [Concomitant]
     Active Substance: VARENICLINE TARTRATE
  10. CLOBETASOL [Concomitant]
     Active Substance: CLOBETASOL
  11. DOCUSATE SODIUM. [Concomitant]
     Active Substance: DOCUSATE SODIUM
  12. PRILOSEC [Concomitant]
     Active Substance: OMEPRAZOLE MAGNESIUM
  13. CELEXA [Concomitant]
     Active Substance: CITALOPRAM HYDROBROMIDE
  14. AMITRIPTYLLINE [Concomitant]
     Active Substance: AMITRIPTYLINE
  15. DIPHENHYDRAMINE. [Concomitant]
     Active Substance: DIPHENHYDRAMINE
  16. PREZISTA [Concomitant]
     Active Substance: DARUNAVIR ETHANOLATE
  17. TRUVADA [Concomitant]
     Active Substance: EMTRICITABINE\TENOFOVIR DISOPROXIL FUMARATE
  18. LISPRO [Concomitant]
     Active Substance: INSULIN LISPRO
  19. NPH INSULIN [Concomitant]
     Active Substance: INSULIN BEEF
  20. REMERON [Concomitant]
     Active Substance: MIRTAZAPINE
  21. ATORVASTATIN [Concomitant]
     Active Substance: ATORVASTATIN
  22. CITALOPRAM [Concomitant]
     Active Substance: CITALOPRAM HYDROBROMIDE
  23. FLONASE [Concomitant]
     Active Substance: FLUTICASONE PROPIONATE
  24. CLARITIN [Concomitant]
     Active Substance: LORATADINE
  25. PHOSLO [Suspect]
     Active Substance: CALCIUM ACETATE
     Indication: HYPERPHOSPHATAEMIA
  26. DELFLEX [Concomitant]
     Active Substance: CALCIUM CHLORIDE\DEXTROSE MONOHYDRATE\MAGNESIUM CHLORIDE\SODIUM CHLORIDE\SODIUM LACTATE
  27. CLOTRIMAZOLE AND BETAMETHASONE DIPROPIONATE [Concomitant]
     Active Substance: BETAMETHASONE\BETAMETHASONE DIPROPIONATE\CLOTRIMAZOLE
  28. TRAMADOL. [Concomitant]
     Active Substance: TRAMADOL
  29. ADVAIR DISKUS [Concomitant]
     Active Substance: FLUTICASONE PROPIONATE\SALMETEROL XINAFOATE
  30. SYMBICORT [Concomitant]
     Active Substance: BUDESONIDE\FORMOTEROL FUMARATE DIHYDRATE
  31. CHOLECALCIFEROL [Concomitant]
     Active Substance: CHOLECALCIFEROL

REACTIONS (5)
  - Escherichia test positive [None]
  - Peritonitis [None]
  - Peritoneal cloudy effluent [None]
  - Product contamination [None]
  - Bacteraemia [None]

NARRATIVE: CASE EVENT DATE: 20140426
